FAERS Safety Report 23679378 (Version 1)
Quarter: 2024Q1

REPORT INFORMATION
  Report Type: Spontaneous
  Country: US (occurrence: US)
  Receive Date: 20240327
  Receipt Date: 20240327
  Transmission Date: 20240409
  Serious: No
  Sender: FDA-Public Use
  Company Number: US-MYLANLABS-2024M1024780

PATIENT

DRUGS (1)
  1. XULANE [Suspect]
     Active Substance: ETHINYL ESTRADIOL\NORELGESTROMIN
     Indication: Product used for unknown indication
     Dosage: UNK
     Route: 062
     Dates: start: 20240310

REACTIONS (7)
  - Pain in extremity [Not Recovered/Not Resolved]
  - Skin exfoliation [Unknown]
  - Blister [Unknown]
  - Infection [Unknown]
  - Peripheral swelling [Unknown]
  - Feeling hot [Unknown]
  - Application site burn [Unknown]

NARRATIVE: CASE EVENT DATE: 20240310
